FAERS Safety Report 25548668 (Version 1)
Quarter: 2025Q3

REPORT INFORMATION
  Report Type: Spontaneous
  Country: US (occurrence: US)
  Receive Date: 20250714
  Receipt Date: 20250714
  Transmission Date: 20251021
  Serious: No
  Sender: BAYER HEALTHCARE LLC
  Company Number: US-BAYER-2025A088920

PATIENT
  Age: 53 Year
  Sex: Male

DRUGS (8)
  1. MIRALAX [Suspect]
     Active Substance: POLYETHYLENE GLYCOL 3350
     Indication: Colonoscopy
     Dosage: 1 DF, BID
     Route: 048
     Dates: start: 20250610, end: 20250617
  2. MIRALAX [Suspect]
     Active Substance: POLYETHYLENE GLYCOL 3350
     Indication: Colonoscopy
     Route: 048
     Dates: start: 20250618
  3. VALSARTAN [Concomitant]
     Active Substance: VALSARTAN
  4. AMLODIPINE [Concomitant]
     Active Substance: AMLODIPINE BESYLATE
  5. LYRICA [Concomitant]
     Active Substance: PREGABALIN
  6. LAMICTAL [Concomitant]
     Active Substance: LAMOTRIGINE
  7. WELLBUTRIN [Concomitant]
     Active Substance: BUPROPION HYDROCHLORIDE
  8. PEG-3350 AND ELECTROLYTES [Suspect]
     Active Substance: POLYETHYLENE GLYCOL 3350\POTASSIUM CHLORIDE\SODIUM BICARBONATE\SODIUM CHLORIDE\SODIUM SULFATE
     Indication: Colonoscopy
     Route: 048
     Dates: start: 20250618, end: 20250619

REACTIONS (2)
  - Drug ineffective [None]
  - Wrong technique in product usage process [None]

NARRATIVE: CASE EVENT DATE: 20250618
